FAERS Safety Report 4766003-2 (Version None)
Quarter: 2005Q3

REPORT INFORMATION
  Report Type: 
  Country: None (occurrence: None)
  Receive Date: 20050912
  Receipt Date: 20050908
  Transmission Date: 20060218
  Serious: Yes (Other)
  Sender: FDA-Public Use
  Company Number: US-GLAXOSMITHKLINE-A0573507A

PATIENT
  Age: 50 Year
  Sex: Female

DRUGS (3)
  1. PAXIL [Suspect]
     Indication: DEPRESSION
     Dosage: 10MG PER DAY
     Route: 048
     Dates: start: 20000101
  2. INSULIN [Concomitant]
  3. RANITIDINE [Concomitant]

REACTIONS (4)
  - CRYING [None]
  - FEELING OF DESPAIR [None]
  - ILL-DEFINED DISORDER [None]
  - SUICIDAL IDEATION [None]
